FAERS Safety Report 13012649 (Version 1)
Quarter: 2016Q4

REPORT INFORMATION
  Report Type: Spontaneous
  Country: NL (occurrence: NL)
  Receive Date: 20161209
  Receipt Date: 20161209
  Transmission Date: 20170207
  Serious: Yes (Death)
  Sender: FDA-Public Use
  Company Number: NL-TOLMAR, INC.-2016NL013237

PATIENT
  Age: 94 Year
  Sex: Male

DRUGS (1)
  1. ELIGARD [Suspect]
     Active Substance: LEUPROLIDE ACETATE
     Indication: PROSTATE CANCER
     Dosage: 45 MG, ONCE EVERY SIX MONTHS
     Route: 058
     Dates: start: 20160921

REACTIONS (1)
  - Cerebral infarction [Fatal]

NARRATIVE: CASE EVENT DATE: 20161205
